FAERS Safety Report 21745508 (Version 4)
Quarter: 2024Q2

REPORT INFORMATION
  Report Type: Spontaneous
  Country: TW (occurrence: None)
  Receive Date: 20221219
  Receipt Date: 20240611
  Transmission Date: 20240716
  Serious: Yes (Other)
  Sender: FDA-Public Use
  Company Number: TW-ROCHE-3241654

PATIENT
  Age: 35 Year
  Sex: Female

DRUGS (13)
  1. CELLCEPT [Suspect]
     Active Substance: MYCOPHENOLATE MOFETIL
     Indication: Renal transplant
     Route: 065
  2. CELLCEPT [Suspect]
     Active Substance: MYCOPHENOLATE MOFETIL
     Route: 065
  3. CELLCEPT [Suspect]
     Active Substance: MYCOPHENOLATE MOFETIL
     Route: 065
     Dates: start: 20201130
  4. PROGRAF [Concomitant]
     Active Substance: TACROLIMUS
     Dosage: 5MG QD/4MG HS
  5. PROGRAF [Concomitant]
     Active Substance: TACROLIMUS
  6. PROGRAF [Concomitant]
     Active Substance: TACROLIMUS
  7. PROGRAF [Concomitant]
     Active Substance: TACROLIMUS
  8. PREDNISOLONE [Concomitant]
     Active Substance: PREDNISOLONE
  9. PREDNISOLONE [Concomitant]
     Active Substance: PREDNISOLONE
  10. IMURAN [Concomitant]
     Active Substance: AZATHIOPRINE
     Dates: start: 20201130
  11. METHYLPREDNISOLONE [Concomitant]
     Active Substance: METHYLPREDNISOLONE
  12. METHYLPREDNISOLONE [Concomitant]
     Active Substance: METHYLPREDNISOLONE
  13. MYFORTIC [Concomitant]
     Active Substance: MYCOPHENOLATE SODIUM

REACTIONS (6)
  - Proteinuria [Unknown]
  - Injury [Unknown]
  - Transplant rejection [Unknown]
  - Pre-eclampsia [Unknown]
  - Vasculitis [Unknown]
  - Maternal exposure before pregnancy [Unknown]

NARRATIVE: CASE EVENT DATE: 20210101
